FAERS Safety Report 19066120 (Version 2)
Quarter: 2021Q2

REPORT INFORMATION
  Report Type: Report from Study
  Country: BR (occurrence: BR)
  Receive Date: 20210327
  Receipt Date: 20210408
  Transmission Date: 20210717
  Serious: Yes (Other)
  Sender: FDA-Public Use
  Company Number: NVSC2021BR070877

PATIENT
  Sex: Female
  Weight: 57 kg

DRUGS (8)
  1. PREGABALINE [Concomitant]
     Active Substance: PREGABALIN
     Indication: PAIN
     Dosage: 1 DF, BID (MORNING AND EVENING) (IN MAY 2020 OR JUN 2020)
     Route: 048
  2. DUAL [Concomitant]
     Indication: PAIN
     Dosage: 1 DF, QD
     Route: 048
     Dates: start: 202009
  3. PREGABALINE [Concomitant]
     Active Substance: PREGABALIN
     Indication: EPILEPSY
  4. LAMOTRIGINE. [Concomitant]
     Active Substance: LAMOTRIGINE
     Indication: EPILEPSY
     Dosage: 1 DF, BID (MORNING AND EVENING)
     Route: 048
     Dates: start: 202004
  5. DUAL [Concomitant]
     Indication: INTERVERTEBRAL DISC PROTRUSION
  6. GLIFAGE [Concomitant]
     Active Substance: METFORMIN HYDROCHLORIDE
     Indication: GLUCOSE TOLERANCE IMPAIRED
     Dosage: 1 DF, QD (IN THE MORNING)
     Route: 048
  7. EXELON [Suspect]
     Active Substance: RIVASTIGMINE TARTRATE
     Indication: DEMENTIA ALZHEIMER^S TYPE
     Dosage: 9.5 MG, QD,  PATCH 10 (CM2)
     Route: 062
     Dates: start: 202012
  8. PREGABALINE [Concomitant]
     Active Substance: PREGABALIN
     Indication: INTERVERTEBRAL DISC PROTRUSION

REACTIONS (1)
  - Dementia Alzheimer^s type [Unknown]
